FAERS Safety Report 5201067-3 (Version None)
Quarter: 2007Q1

REPORT INFORMATION
  Report Type: 
  Country: None (occurrence: None)
  Receive Date: 20070103
  Receipt Date: 20061221
  Transmission Date: 20070707
  Serious: Yes (Hospitalization)
  Sender: FDA-Public Use
  Company Number: GXKR2006CH08452

PATIENT
  Age: 78 Year
  Sex: Male

DRUGS (14)
  1. CIP ECO (NGX)(CIPROFLOXACIN) [Suspect]
     Indication: PYREXIA
     Dosage: ORAL
     Route: 048
     Dates: start: 20060828, end: 20060830
  2. AMARYL [Suspect]
     Dosage: ORAL
     Route: 048
     Dates: end: 20060830
  3. GLUCONORM (METFORMIN) [Suspect]
     Dosage: ORAL
     Route: 048
     Dates: end: 20060830
  4. ATARAX [Concomitant]
  5. AVODART [Concomitant]
  6. SINEMET [Concomitant]
  7. LORAZEPAM [Concomitant]
  8. XATRAL (ALFUZOSIN) [Concomitant]
  9. TRANSIPEG (MACROGOL 3350, POTASSIUM CHLORIDE, SODIUM BICARBONATE, SODI [Concomitant]
  10. MOTILIUM [Concomitant]
  11. CLOZAPINE [Concomitant]
  12. PANTOZOL (PANTOPRAZOLE SODIUM) [Concomitant]
  13. CALCIUM (CALCIUM) [Concomitant]
  14. TRAMADOL HCL [Concomitant]

REACTIONS (4)
  - CEREBRAL ATROPHY [None]
  - DRUG INTERACTION [None]
  - HYPOGLYCAEMIC COMA [None]
  - TACHYCARDIA [None]
